FAERS Safety Report 20621775 (Version 1)
Quarter: 2022Q1

REPORT INFORMATION
  Report Type: Spontaneous
  Country: US (occurrence: None)
  Receive Date: 20220321
  Receipt Date: 20220321
  Transmission Date: 20220423
  Serious: Yes (Other)
  Sender: FDA-Public Use
  Company Number: None

PATIENT
  Age: 65 Year
  Sex: Female
  Weight: 45 kg

DRUGS (14)
  1. TAMOXIFEN [Suspect]
     Active Substance: TAMOXIFEN
     Indication: Breast cancer
     Dosage: FREQUENCY : AT BEDTIME;?
     Route: 048
     Dates: start: 20211001, end: 20220320
  2. SYMBICORT [Concomitant]
     Active Substance: BUDESONIDE\FORMOTEROL FUMARATE DIHYDRATE
  3. SPIRIVA [Concomitant]
     Active Substance: TIOTROPIUM BROMIDE MONOHYDRATE
  4. COMBIVENT [Concomitant]
     Active Substance: ALBUTEROL SULFATE\IPRATROPIUM BROMIDE
  5. LEVOTHYROXINE [Concomitant]
     Active Substance: LEVOTHYROXINE
  6. EUTHYROX [Concomitant]
     Active Substance: LEVOTHYROXINE SODIUM
  7. RADIATION THERAPY [Concomitant]
     Active Substance: RADIATION THERAPY
  8. MINERALS\VITAMINS [Concomitant]
     Active Substance: MINERALS\VITAMINS
  9. VITAMIN D [Concomitant]
     Active Substance: VITAMIN D NOS
  10. ADVIL [Concomitant]
     Active Substance: IBUPROFEN
  11. COLACE [Concomitant]
     Active Substance: DOCUSATE SODIUM
  12. GAS-X [Concomitant]
     Active Substance: DIMETHICONE
  13. MYLANTA [Concomitant]
     Active Substance: ALUMINUM HYDROXIDE\DIMETHICONE\MAGNESIUM HYDROXIDE
  14. FLEET ENEMA [Concomitant]
     Active Substance: SODIUM PHOSPHATE, DIBASIC\SODIUM PHOSPHATE, MONOBASIC

REACTIONS (8)
  - Hyperhidrosis [None]
  - Xanthopsia [None]
  - Headache [None]
  - Nightmare [None]
  - Hallucination [None]
  - Insomnia [None]
  - Saliva discolouration [None]
  - Incontinence [None]

NARRATIVE: CASE EVENT DATE: 20211001
